FAERS Safety Report 17914108 (Version 1)
Quarter: 2020Q2

REPORT INFORMATION
  Report Type: Spontaneous
  Country: US (occurrence: US)
  Receive Date: 20200618
  Receipt Date: 20200618
  Transmission Date: 20200714
  Serious: No
  Sender: FDA-Public Use
  Company Number: US-ROCHE-2572712

PATIENT
  Sex: Female

DRUGS (1)
  1. XOFLUZA [Suspect]
     Active Substance: BALOXAVIR MARBOXIL
     Indication: INFLUENZA
     Dosage: TWO 40 MG TABLETS-ONE DOSE; ONGOING: UNKNOWN
     Route: 065
     Dates: start: 20200226

REACTIONS (3)
  - No adverse event [Unknown]
  - Product packaging quantity issue [Unknown]
  - Product dose omission [Unknown]
